FAERS Safety Report 7693269-1 (Version None)
Quarter: 2011Q3

REPORT INFORMATION
  Report Type: 
  Country: None (occurrence: None)
  Receive Date: 20110819
  Receipt Date: 20110805
  Transmission Date: 20111222
  Serious: Yes (Other)
  Sender: FDA-Public Use
  Company Number: PHHY2011AR71424

PATIENT
  Sex: Female

DRUGS (1)
  1. DIOVAN [Suspect]
     Indication: HYPERTENSION
     Dosage: 2 TABLETS (80 MG)
     Dates: start: 20110729

REACTIONS (5)
  - BACK PAIN [None]
  - INCREASED UPPER AIRWAY SECRETION [None]
  - COUGH [None]
  - WHEEZING [None]
  - BRONCHITIS [None]
